FAERS Safety Report 6640657-8 (Version None)
Quarter: 2010Q1

REPORT INFORMATION
  Report Type: 
  Country: None (occurrence: None)
  Receive Date: 20100318
  Receipt Date: 20100310
  Transmission Date: 20100710
  Serious: Yes (Death, Hospitalization, Other)
  Sender: FDA-Public Use
  Company Number: ES-CELGENEUS-144-50794-10030972

PATIENT
  Sex: Male

DRUGS (3)
  1. VIDAZA [Suspect]
     Route: 058
     Dates: start: 20080527
  2. VIDAZA [Suspect]
     Route: 058
     Dates: start: 20080624
  3. VIDAZA [Suspect]
     Route: 058
     Dates: start: 20080721

REACTIONS (6)
  - ANAEMIA [None]
  - ASTHENIA [None]
  - DEATH [None]
  - GENERAL PHYSICAL HEALTH DETERIORATION [None]
  - HYPERGLYCAEMIA [None]
  - THROMBOCYTOPENIA [None]
